FAERS Safety Report 4951875-9 (Version None)
Quarter: 2006Q1

REPORT INFORMATION
  Report Type: 
  Country: None (occurrence: None)
  Receive Date: 20060323
  Receipt Date: 20051222
  Transmission Date: 20060701
  Serious: Yes (Hospitalization)
  Sender: FDA-Public Use
  Company Number: US-MERCK-0512USA03631

PATIENT
  Age: 61 Year
  Sex: Male
  Weight: 73 kg

DRUGS (9)
  1. VIOXX [Suspect]
     Indication: SPONDYLITIS
     Route: 048
     Dates: start: 19990501, end: 19990801
  2. VIOXX [Suspect]
     Route: 048
     Dates: start: 19990501, end: 19990801
  3. VIOXX [Suspect]
     Route: 048
     Dates: start: 20020101
  4. VIOXX [Suspect]
     Route: 048
     Dates: start: 20020101
  5. VIOXX [Suspect]
     Indication: MYOFASCITIS
     Route: 048
     Dates: start: 19990501, end: 19990801
  6. VIOXX [Suspect]
     Route: 048
     Dates: start: 19990501, end: 19990801
  7. VIOXX [Suspect]
     Route: 048
     Dates: start: 20020101
  8. VIOXX [Suspect]
     Route: 048
     Dates: start: 20020101
  9. CARISOPRODOL [Concomitant]
     Route: 065

REACTIONS (3)
  - MYOCARDIAL INFARCTION [None]
  - RIB FRACTURE [None]
  - WRIST FRACTURE [None]
